FAERS Safety Report 7252424-5 (Version None)
Quarter: 2011Q1

REPORT INFORMATION
  Report Type: 
  Country: None (occurrence: None)
  Receive Date: 20110129
  Receipt Date: 20100201
  Transmission Date: 20110831
  Serious: No
  Sender: FDA-Public Use
  Company Number: US-ABBOTT-10P-163-0617818-00

PATIENT
  Sex: Male
  Weight: 72.64 kg

DRUGS (3)
  1. ENTOCORT EC [Concomitant]
     Indication: PRODUCT USED FOR UNKNOWN INDICATION
     Dates: start: 20090101
  2. HUMIRA [Suspect]
  3. HUMIRA [Suspect]
     Indication: CROHN'S DISEASE
     Dates: start: 20091207

REACTIONS (2)
  - RHINORRHOEA [None]
  - ACNE [None]
